FAERS Safety Report 6858233-0 (Version None)
Quarter: 2010Q3

REPORT INFORMATION
  Report Type: 
  Country: None (occurrence: None)
  Receive Date: 20100719
  Receipt Date: 20080404
  Transmission Date: 20110219
  Serious: No
  Sender: FDA-Public Use
  Company Number: US-PFIZER INC-2008012393

PATIENT
  Sex: Female
  Weight: 81.3 kg

DRUGS (8)
  1. CHANTIX [Suspect]
     Indication: SMOKING CESSATION THERAPY
     Dates: start: 20080101
  2. LEXAPRO [Concomitant]
  3. ATENOLOL [Concomitant]
  4. NEXIUM [Concomitant]
  5. LORTAB [Concomitant]
  6. ADVAIR DISKUS 100/50 [Concomitant]
  7. ALBUTEROL [Concomitant]
  8. LIPITOR [Concomitant]

REACTIONS (9)
  - BREAST MASS [None]
  - BREAST PAIN [None]
  - FOOD CRAVING [None]
  - INCREASED APPETITE [None]
  - LYMPHADENOPATHY [None]
  - NAUSEA [None]
  - NERVOUSNESS [None]
  - VOMITING [None]
  - WEIGHT INCREASED [None]
